FAERS Safety Report 15820878 (Version 1)
Quarter: 2019Q1

REPORT INFORMATION
  Report Type: Spontaneous
  Country: DE (occurrence: DE)
  Receive Date: 20190114
  Receipt Date: 20190114
  Transmission Date: 20190417
  Serious: Yes (Death, Other)
  Sender: FDA-Public Use
  Company Number: DE-JNJFOC-20190115345

PATIENT
  Age: 87 Year
  Sex: Male

DRUGS (1)
  1. TRAMADOL HYDROCHLORIDE. [Suspect]
     Active Substance: TRAMADOL HYDROCHLORIDE
     Indication: RESTLESSNESS
     Route: 065

REACTIONS (5)
  - Circulatory collapse [Unknown]
  - Respiratory arrest [Fatal]
  - Intentional product misuse [Unknown]
  - Prescription drug used without a prescription [Unknown]
  - Overdose [Unknown]

NARRATIVE: CASE EVENT DATE: 20161221
